FAERS Safety Report 19426596 (Version 3)
Quarter: 2022Q2

REPORT INFORMATION
  Report Type: Spontaneous
  Country: US (occurrence: US)
  Receive Date: 20210616
  Receipt Date: 20220601
  Transmission Date: 20220721
  Serious: Yes (Hospitalization, Other)
  Sender: FDA-Public Use
  Company Number: US-MLMSERVICE-20210528-2907818-1

PATIENT
  Age: 48 Year
  Sex: Male

DRUGS (1)
  1. HEPARIN SODIUM [Suspect]
     Active Substance: HEPARIN SODIUM
     Indication: Thrombosis prophylaxis
     Dosage: 7500 IU, 3X/DAY (Q8H)
     Route: 058

REACTIONS (4)
  - Compartment syndrome [Unknown]
  - Heparin-induced thrombocytopenia [Recovered/Resolved]
  - Arterial thrombosis [Unknown]
  - Venous thrombosis [Unknown]
